FAERS Safety Report 9168595 (Version 1)
Quarter: 2013Q1

REPORT INFORMATION
  Report Type: Spontaneous
  Country: JP (occurrence: JP)
  Receive Date: 20130318
  Receipt Date: 20130318
  Transmission Date: 20140127
  Serious: Yes (Other)
  Sender: FDA-Public Use
  Company Number: JP-PFIZER INC-2013086781

PATIENT
  Sex: Female

DRUGS (1)
  1. LYRICA [Suspect]
     Dosage: 50 MG (25 MG X2), DAILY
     Route: 048
     Dates: start: 2012

REACTIONS (3)
  - Loss of consciousness [Unknown]
  - Fall [Unknown]
  - Head injury [Unknown]
